FAERS Safety Report 11267626 (Version 1)
Quarter: 2015Q3

REPORT INFORMATION
  Report Type: Spontaneous
  Country: US (occurrence: US)
  Receive Date: 20150713
  Receipt Date: 20150713
  Transmission Date: 20151125
  Serious: No
  Sender: FDA-Public Use
  Company Number: US-GLAXOSMITHKLINE-US2015099794

PATIENT
  Sex: Female
  Weight: 93 kg

DRUGS (1)
  1. EQUATE NICOTINE [Suspect]
     Active Substance: NICOTINE
     Indication: SMOKING CESSATION THERAPY
     Dosage: 21 MG, UNK
     Dates: start: 20150703, end: 20150705

REACTIONS (3)
  - Application site urticaria [Recovered/Resolved]
  - Application site reaction [Recovered/Resolved]
  - Application site irritation [Recovered/Resolved]
